FAERS Safety Report 4433790-2 (Version None)
Quarter: 2004Q3

REPORT INFORMATION
  Report Type: 
  Country: None (occurrence: None)
  Receive Date: 20040825
  Receipt Date: 20040805
  Transmission Date: 20050211
  Serious: Yes (Other)
  Sender: FDA-Public Use
  Company Number: USA040874609

PATIENT
  Age: 68 Year
  Sex: Male
  Weight: 89 kg

DRUGS (1)
  1. HUMALOG [Suspect]
     Dosage: 110 U DAY
     Dates: start: 20010101

REACTIONS (8)
  - BODY HEIGHT DECREASED [None]
  - CATARACT [None]
  - GLAUCOMA [None]
  - MACULOPATHY [None]
  - MEDICATION ERROR [None]
  - PHARMACEUTICAL PRODUCT COMPLAINT [None]
  - VISION BLURRED [None]
  - VISUAL FIELD DEFECT [None]
